FAERS Safety Report 5647508-9 (Version None)
Quarter: 2008Q1

REPORT INFORMATION
  Report Type: 
  Country: None (occurrence: None)
  Receive Date: 20080303
  Receipt Date: 20080219
  Transmission Date: 20080703
  Serious: Yes (Other)
  Sender: FDA-Public Use
  Company Number: US-ELI_LILLY_AND_COMPANY-US200802005183

PATIENT
  Age: 65 Year
  Sex: Male

DRUGS (4)
  1. CYMBALTA [Suspect]
     Dosage: 60 MG, 2/D
  2. CYMBALTA [Suspect]
     Dosage: 60 MG, DAILY (1/D)
  3. WELLBUTRIN [Concomitant]
     Dosage: 300 MG, UNK
  4. OTHER ANALGESICS AND ANTIPYRETICS [Concomitant]
     Dosage: 1 D/F, UNK

REACTIONS (1)
  - BLOOD PRESSURE INCREASED [None]
